FAERS Safety Report 6120888-6 (Version None)
Quarter: 2009Q1

REPORT INFORMATION
  Report Type: 
  Country: None (occurrence: None)
  Receive Date: 20090317
  Receipt Date: 20090112
  Transmission Date: 20090719
  Serious: No
  Sender: FDA-Public Use
  Company Number: US-BAYER-200910129BCC

PATIENT
  Age: 82 Year
  Sex: Female
  Weight: 66 kg

DRUGS (4)
  1. ALEVE [Suspect]
     Indication: ARTHRITIS
     Dosage: TOTAL DAILY DOSE: 220 MG  UNIT DOSE: 220 MG
     Dates: start: 20081229, end: 20081229
  2. ALEVE [Suspect]
     Dosage: TOTAL DAILY DOSE: 200 MG  UNIT DOSE: 220 MG
     Dates: start: 20090111, end: 20090111
  3. MULTI-VITAMIN [Concomitant]
  4. UNKNOWN BLOOD PRESSURE PILL [Concomitant]

REACTIONS (2)
  - FATIGUE [None]
  - INSOMNIA [None]
